FAERS Safety Report 4930098-3 (Version None)
Quarter: 2006Q1

REPORT INFORMATION
  Report Type: 
  Country: None (occurrence: None)
  Receive Date: 20060228
  Receipt Date: 20060228
  Transmission Date: 20060701
  Serious: Yes (Other)
  Sender: FDA-Public Use
  Company Number: None

PATIENT
  Sex: Female
  Weight: 61.6892 kg

DRUGS (5)
  1. WELCHOL [Suspect]
     Indication: HYPERCHOLESTEROLAEMIA
     Dosage: 6 PO Q DAY
     Route: 048
  2. CELEXA [Concomitant]
  3. CYMBALTA [Concomitant]
  4. KLONOPRIN [Concomitant]
  5. PREMARIN [Concomitant]

REACTIONS (1)
  - URTICARIA [None]
